FAERS Safety Report 4843784-0 (Version None)
Quarter: 2005Q4

REPORT INFORMATION
  Report Type: 
  Country: None (occurrence: None)
  Receive Date: 20051202
  Receipt Date: 20051122
  Transmission Date: 20060501
  Serious: Yes (Other)
  Sender: FDA-Public Use
  Company Number: IN-JNJFOC-20051102626

PATIENT
  Sex: Male
  Weight: 68 kg

DRUGS (5)
  1. REMICADE [Suspect]
     Route: 042
  2. REMICADE [Suspect]
     Route: 042
  3. REMICADE [Suspect]
     Route: 042
  4. REMICADE [Suspect]
     Indication: SPONDYLOARTHROPATHY
     Route: 042
  5. PARACETAMOL [Concomitant]

REACTIONS (2)
  - ARTHROPATHY [None]
  - THERAPEUTIC RESPONSE DECREASED [None]
